FAERS Safety Report 11396632 (Version 1)
Quarter: 2015Q3

REPORT INFORMATION
  Report Type: Spontaneous
  Country: US (occurrence: US)
  Receive Date: 20150819
  Receipt Date: 20150819
  Transmission Date: 20151125
  Serious: Yes (Other)
  Sender: FDA-Public Use
  Company Number: US-LPDUSPRD-20150489

PATIENT
  Age: 16 Year
  Sex: Female

DRUGS (4)
  1. NO DRUG NAME [Concomitant]
  2. 6 MERCAPTOPURINE [Concomitant]
     Active Substance: MERCAPTOPURINE
     Dosage: 50 MG DAILY
     Route: 048
     Dates: start: 20150528
  3. REMICADE [Concomitant]
     Active Substance: INFLIXIMAB
     Dosage: 600 MG ONCE EVERY 6 WEEKS
     Route: 042
     Dates: start: 201006
  4. INJECTAFER [Suspect]
     Active Substance: FERRIC CARBOXYMALTOSE
     Dosage: 750MG IN 250ML NS OVER 60MIN
     Route: 042
     Dates: start: 20150616

REACTIONS (1)
  - Chest discomfort [Unknown]

NARRATIVE: CASE EVENT DATE: 20150616
